FAERS Safety Report 24449831 (Version 2)
Quarter: 2025Q1

REPORT INFORMATION
  Report Type: Spontaneous
  Country: IT (occurrence: IT)
  Receive Date: 20241017
  Receipt Date: 20250217
  Transmission Date: 20250409
  Serious: Yes (Hospitalization, Other)
  Sender: PFIZER
  Company Number: IT-002147023-NVSC2023IT190849

PATIENT
  Age: 62 Year
  Sex: Female
  Weight: 61 kg

DRUGS (14)
  1. IRINOTECAN HYDROCHLORIDE [Suspect]
     Active Substance: IRINOTECAN HYDROCHLORIDE
     Indication: Colorectal cancer metastatic
     Route: 042
     Dates: start: 20230517
  2. BEVACIZUMAB [Suspect]
     Active Substance: BEVACIZUMAB
     Indication: Colorectal cancer metastatic
     Dates: start: 20230517
  3. LEVOLEUCOVORIN CALCIUM [Suspect]
     Active Substance: LEVOLEUCOVORIN CALCIUM
     Indication: Colorectal cancer metastatic
     Dates: start: 20230517
  4. FLUOROURACIL [Suspect]
     Active Substance: FLUOROURACIL
     Indication: Colorectal cancer metastatic
     Route: 042
     Dates: start: 20230517
  5. FLUOROURACIL [Suspect]
     Active Substance: FLUOROURACIL
     Route: 042
     Dates: start: 20230517
  6. ATROPINE [Concomitant]
     Active Substance: ATROPINE
     Indication: Premedication
     Dates: start: 20230518
  7. ATROPINE [Concomitant]
     Active Substance: ATROPINE
     Indication: Chemotherapy side effect prophylaxis
  8. DEXAMETHASONE [Concomitant]
     Active Substance: DEXAMETHASONE
     Indication: Premedication
     Dates: start: 20230518
  9. DEXAMETHASONE [Concomitant]
     Active Substance: DEXAMETHASONE
     Indication: Chemotherapy side effect prophylaxis
  10. CHLORPHENIRAMINE MALEATE [Concomitant]
     Active Substance: CHLORPHENIRAMINE MALEATE
     Indication: Rash
     Dates: start: 20230531
  11. PALONOSETRON [Concomitant]
     Active Substance: PALONOSETRON
     Indication: Premedication
     Dates: start: 20230518
  12. PALONOSETRON [Concomitant]
     Active Substance: PALONOSETRON
     Indication: Chemotherapy side effect prophylaxis
  13. PANTOPRAZOLE [Concomitant]
     Active Substance: PANTOPRAZOLE
     Indication: General physical condition
     Dates: start: 20230708
  14. ENOXAPARIN [Concomitant]
     Active Substance: ENOXAPARIN
     Indication: Thrombosis
     Dates: start: 20230718

REACTIONS (1)
  - Cholangitis [Recovered/Resolved]

NARRATIVE: CASE EVENT DATE: 20230901
